FAERS Safety Report 5958772-0 (Version None)
Quarter: 2008Q4

REPORT INFORMATION
  Report Type: 
  Country: None (occurrence: None)
  Receive Date: 20081119
  Receipt Date: 20081111
  Transmission Date: 20090506
  Serious: Yes (Other)
  Sender: FDA-Public Use
  Company Number: US-GILEAD-2008-0018965

PATIENT

DRUGS (2)
  1. TRUVADA [Suspect]
     Indication: HIV INFECTION
  2. SUSTIVA [Concomitant]

REACTIONS (1)
  - NEPHROLITHIASIS [None]
